FAERS Safety Report 4402685-2 (Version None)
Quarter: 2004Q3

REPORT INFORMATION
  Report Type: 
  Country: None (occurrence: None)
  Receive Date: 20040715
  Receipt Date: 20040706
  Transmission Date: 20050211
  Serious: Yes (Disabling, Other)
  Sender: FDA-Public Use
  Company Number: 2004-04-1010

PATIENT
  Age: 50 Year
  Sex: Male
  Weight: 90.7194 kg

DRUGS (14)
  1. PEG-INTRON [Suspect]
     Indication: HEPATITIS C
     Dosage: 150-75 MCQ QW SUBCUTANEOUS
     Route: 058
     Dates: start: 20030423, end: 20031020
  2. REBETOL [Suspect]
     Indication: HEPATITIS C
     Dosage: 1200 MG QD ORAL
     Route: 048
     Dates: start: 20030429, end: 20031022
  3. AMANTADINE HCL [Concomitant]
  4. NEXIUM [Concomitant]
  5. MULTIVITAMIN [Concomitant]
  6. MULTI-VITAMINS [Concomitant]
  7. VITAMIN E [Concomitant]
  8. HEPATITIS B VACCINE [Concomitant]
  9. DICYCLOMINE HYDROCHLORIDE [Concomitant]
  10. XANAX [Concomitant]
  11. ALBUTEROL [Concomitant]
  12. AMOXICILLIN [Concomitant]
  13. METHYKLPREDNISOLONE [Concomitant]
  14. VIOXX [Concomitant]

REACTIONS (31)
  - ABASIA [None]
  - ABDOMINAL DISTENSION [None]
  - ABDOMINAL PAIN [None]
  - AGITATION [None]
  - AMNESIA [None]
  - ANOREXIA [None]
  - ANXIETY [None]
  - BACK PAIN [None]
  - BLINDNESS [None]
  - BLOOD TRIGLYCERIDES INCREASED [None]
  - BONE PAIN [None]
  - CLAUSTROPHOBIA [None]
  - CONFUSIONAL STATE [None]
  - CYST [None]
  - DISTURBANCE IN ATTENTION [None]
  - DRUG HYPERSENSITIVITY [None]
  - DYSPNOEA [None]
  - DYSURIA [None]
  - EPILEPSY [None]
  - EXOSTOSIS [None]
  - EYELID DISORDER [None]
  - FATIGUE [None]
  - IRRITABILITY [None]
  - MUSCLE DISORDER [None]
  - PARANOIA [None]
  - RASH [None]
  - SUICIDAL IDEATION [None]
  - SWOLLEN TONGUE [None]
  - TONGUE BITING [None]
  - TOXIC SHOCK SYNDROME [None]
  - TREMOR [None]
